FAERS Safety Report 22067768 (Version 1)
Quarter: 2023Q1

REPORT INFORMATION
  Report Type: Spontaneous
  Country: US (occurrence: US)
  Receive Date: 20230307
  Receipt Date: 20230307
  Transmission Date: 20230418
  Serious: Yes (Other)
  Sender: FDA-Public Use
  Company Number: US-NOVOPROD-1032787

PATIENT
  Sex: Female

DRUGS (2)
  1. NORDITROPIN [Suspect]
     Active Substance: SOMATROPIN
     Indication: Product used for unknown indication
     Dosage: 5 MG
     Route: 058
  2. NORDITROPIN [Suspect]
     Active Substance: SOMATROPIN
     Indication: Product used for unknown indication
     Dosage: 5 MG
     Route: 058

REACTIONS (3)
  - Myocardial infarction [Unknown]
  - Wrong technique in device usage process [Unknown]
  - Product dispensing error [Unknown]
